FAERS Safety Report 20889167 (Version 1)
Quarter: 2022Q2

REPORT INFORMATION
  Report Type: Spontaneous
  Country: US (occurrence: US)
  Receive Date: 20220530
  Receipt Date: 20220530
  Transmission Date: 20220720
  Serious: No
  Sender: FDA-Public Use
  Company Number: US-drreddys-SPO/USA/22/0149968

PATIENT
  Age: 30 Year
  Sex: Female

DRUGS (1)
  1. ZENATANE [Suspect]
     Active Substance: ISOTRETINOIN
     Indication: Acne
     Dosage: RMA ISSUE DATE: 11 OCTOBER 2021 12:00:00 AM, 11 NOVEMBER 2021 12:00:00 AM, 28 DECEMBER 2021 03:51:48

REACTIONS (1)
  - Treatment noncompliance [Unknown]
